FAERS Safety Report 8077377-1 (Version None)
Quarter: 2012Q1

REPORT INFORMATION
  Report Type: 
  Country: None (occurrence: None)
  Receive Date: 20120127
  Receipt Date: 20120124
  Transmission Date: 20120608
  Serious: Yes (Life-Threatening)
  Sender: FDA-Public Use
  Company Number: PHHY2012JP006652

PATIENT
  Age: 64 Year
  Sex: Female

DRUGS (4)
  1. METFORMIN HCL [Concomitant]
     Route: 048
  2. RASILEZ [Suspect]
     Indication: HYPERTENSION
     Route: 048
  3. AVAPRO [Concomitant]
     Route: 048
  4. SYAKUYAKUKANZOTO [Concomitant]
     Route: 048

REACTIONS (4)
  - ARRHYTHMIA [None]
  - BRADYCARDIA [None]
  - LONG QT SYNDROME [None]
  - HYPERKALAEMIA [None]
